FAERS Safety Report 23453044 (Version 3)
Quarter: 2025Q3

REPORT INFORMATION
  Report Type: Report from Study
  Country: EU (occurrence: EU)
  Receive Date: 20240129
  Receipt Date: 20250911
  Transmission Date: 20251021
  Serious: Yes (Other)
  Sender: RANBAXY
  Company Number: EU-SUN PHARMACEUTICAL INDUSTRIES LTD-2024R1-429039

PATIENT
  Age: 84 Year
  Sex: Male

DRUGS (6)
  1. VALPROIC ACID [Interacting]
     Active Substance: VALPROIC ACID
     Indication: Atrial fibrillation
     Route: 065
  2. BRIVARACETAM [Suspect]
     Active Substance: BRIVARACETAM
     Indication: Atrial fibrillation
     Dosage: 100 MILLIGRAM, DAILY
     Route: 065
  3. CLONAZEPAM [Suspect]
     Active Substance: CLONAZEPAM
     Indication: Atrial fibrillation
  4. EDOXABAN [Interacting]
     Active Substance: EDOXABAN
     Indication: Atrial fibrillation
     Route: 065
  5. BISOPROLOL [Concomitant]
     Active Substance: BISOPROLOL
     Indication: Product used for unknown indication
     Route: 065
  6. FUROSEMIDE [Concomitant]
     Active Substance: FUROSEMIDE
     Indication: Product used for unknown indication
     Route: 065

REACTIONS (3)
  - Drug interaction [Unknown]
  - Drug level increased [Unknown]
  - Epistaxis [Recovered/Resolved]
